FAERS Safety Report 11253226 (Version 1)
Quarter: 2015Q3

REPORT INFORMATION
  Report Type: Report from Study
  Country: JP (occurrence: None)
  Receive Date: 20150707
  Receipt Date: 20150707
  Transmission Date: 20151125
  Serious: Yes (Hospitalization, Other)
  Sender: FDA-Public Use
  Company Number: 2014MPI01596

PATIENT
  Age: 35 Year
  Sex: Male
  Weight: 83.9 kg

DRUGS (3)
  1. POTELIGEO (MOGAMULIZUMAB) [Suspect]
     Active Substance: MOGAMULIZUMAB
     Indication: ANAPLASTIC LARGE-CELL LYMPHOMA
     Route: 041
     Dates: start: 20140415
  2. OTHER ANTINEOPLASTIC AGENTS [Suspect]
     Active Substance: UNSPECIFIED INGREDIENT
     Indication: ANAPLASTIC LARGE-CELL LYMPHOMA
     Route: 041
  3. ADCETRIS [Suspect]
     Active Substance: BRENTUXIMAB VEDOTIN
     Indication: ANAPLASTIC LARGE-CELL LYMPHOMA
     Route: 041
     Dates: start: 20140528, end: 20140528

REACTIONS (6)
  - Pyrexia [None]
  - Generalised erythema [None]
  - Acute respiratory failure [None]
  - Interstitial lung disease [None]
  - Neutropenia [None]
  - Infusion related reaction [None]

NARRATIVE: CASE EVENT DATE: 20140530
